FAERS Safety Report 23886174 (Version 1)
Quarter: 2024Q2

REPORT INFORMATION
  Report Type: Spontaneous
  Country: US (occurrence: US)
  Receive Date: 20240522
  Receipt Date: 20240522
  Transmission Date: 20240716
  Serious: Yes (Other)
  Sender: FDA-Public Use
  Company Number: US-Blueprint Medicines Corporation-3576

PATIENT
  Sex: Female

DRUGS (1)
  1. AYVAKIT [Suspect]
     Active Substance: AVAPRITINIB
     Indication: Brain neoplasm malignant
     Route: 065
     Dates: start: 20240320

REACTIONS (5)
  - Gastrointestinal haemorrhage [Unknown]
  - Haemorrhage [Unknown]
  - Somnolence [Unknown]
  - Nausea [Unknown]
  - Off label use [Unknown]
